FAERS Safety Report 15837583 (Version 1)
Quarter: 2018Q4

REPORT INFORMATION
  Report Type: Spontaneous
  Country: US (occurrence: US)
  Receive Date: 20181221
  Receipt Date: 20181221
  Transmission Date: 20190205
  Serious: No
  Sender: FDA-Public Use
  Company Number: None

PATIENT
  Age: 57 Year
  Sex: Male

DRUGS (1)
  1. TALTZ [Suspect]
     Active Substance: IXEKIZUMAB
     Indication: PSORIASIS
     Dosage: INJECT 80MG (1 SYRINGES) SUBCUTANEOUSLY EVERY 2 WEEKS AT WEEKS 2-12 AS DIRECTED
     Route: 058
     Dates: start: 201811

REACTIONS (2)
  - Hospitalisation [None]
  - Limb operation [None]
